FAERS Safety Report 7166606-4 (Version None)
Quarter: 2010Q4

REPORT INFORMATION
  Report Type: 
  Country: None (occurrence: None)
  Receive Date: 20101216
  Receipt Date: 20101209
  Transmission Date: 20110411
  Serious: Yes (Other)
  Sender: FDA-Public Use
  Company Number: ES-PFIZER INC-2010172711

PATIENT
  Age: 62 Year
  Sex: Female

DRUGS (2)
  1. TRANGOREX [Suspect]
     Indication: PRODUCT USED FOR UNKNOWN INDICATION
     Dosage: UNK, DAILY
     Route: 048
     Dates: start: 20090605, end: 20100518
  2. AMITRIPTYLINE W/PERPHENAZINE [Suspect]
     Indication: PRODUCT USED FOR UNKNOWN INDICATION
     Dosage: UNKNOWN

REACTIONS (2)
  - HYPERTHYROIDISM [None]
  - MUSCLE RIGIDITY [None]
